FAERS Safety Report 9547582 (Version 2)
Quarter: 2013Q3

REPORT INFORMATION
  Report Type: Spontaneous
  Country: US (occurrence: None)
  Receive Date: 20130606
  Receipt Date: 20130906
  Transmission Date: 20140515
  Serious: Yes (Other)
  Sender: FDA-Public Use
  Company Number: 163-POMAL-13034180

PATIENT
  Age: 65 Year
  Sex: Female
  Weight: 76 kg

DRUGS (23)
  1. POMALYST (POMALIDOMIDE) (4 MILLIGRAM, CAPSULES) [Suspect]
     Indication: PLASMA CELL MYELOMA
     Dosage: 4 MG, 21 IN 21 D, PO
     Route: 048
     Dates: start: 20130509, end: 20130523
  2. VELCADE (BORTEZOMIB) [Concomitant]
  3. DEXAMETHASONE (DEXAMETHASONE) [Concomitant]
  4. ZOMETA (ZOLEDRONIC ACID) [Concomitant]
  5. AMITRIPTYLINE HCL (AMITRIPTYLINE HYDROCHLORIDE) [Concomitant]
  6. HYDROCODONE/ACETAMINOPHEN (REMEDEINE) [Concomitant]
  7. BYSTOLIC (NEBIVOLOL HYDROCHLORIDE) [Concomitant]
  8. CYANOCOBALAMIN (CYANOCOBALAMIN) [Concomitant]
  9. DEXILANT (DEXLANSOPRAZOLE) [Concomitant]
  10. FOLIC ACID (FOLIC ACID) [Concomitant]
  11. IMODIUM A-D (LOPERAMIDE HYDROCHLORIDE) [Concomitant]
  12. LOMOTIL (LOMOTIL) [Concomitant]
  13. LORAZEPAM (LORAZEPAM) [Concomitant]
  14. ONDANSETRON ODT (ONDANSETRON HYDROCHLORIDE) [Concomitant]
  15. OXYCODONE HCL/ACETAMINOPHEN (OXYCOCET) [Concomitant]
  16. POTASSIUM CHLORIDE (POTASSIUM CHLORIDE) [Concomitant]
  17. QUESTRAN (COLESTYRAMINE) [Concomitant]
  18. RESTORIL (TEMAZEPAM) [Concomitant]
  19. TESSALON PERLE (BENZONATATE) [Concomitant]
  20. ZOLPIDEM TARTRATE (ZOLPIDEM TARTRATE) [Concomitant]
  21. LUNESTA (ESZOPICLONE) [Concomitant]
  22. ESTRADIOL (ESTRADIOL) [Concomitant]
  23. NORMAL SALINE (SODIUM CHLORIDE) [Concomitant]

REACTIONS (5)
  - Anaemia [None]
  - Abdominal pain [None]
  - Asthenia [None]
  - Dyspnoea [None]
  - Diarrhoea [None]
